FAERS Safety Report 9494700 (Version 2)
Quarter: 2013Q3

REPORT INFORMATION
  Report Type: Spontaneous
  Country: US (occurrence: US)
  Receive Date: 20130903
  Receipt Date: 20130917
  Transmission Date: 20140515
  Serious: Yes (Disabling, Other)
  Sender: FDA-Public Use
  Company Number: US-JNJFOC-20130814657

PATIENT
  Age: 48 Year
  Sex: Female
  Weight: 82.56 kg

DRUGS (9)
  1. ULTRAM [Suspect]
     Indication: PRODUCT USED FOR UNKNOWN INDICATION
     Dosage: 1 TO 2 ONCE IN 6 HOURS
     Route: 048
  2. LYRICA [Suspect]
     Indication: NEUROPATHY PERIPHERAL
     Dosage: 3 TIMES A DAY
     Route: 065
     Dates: start: 2011
  3. NEURONTIN [Suspect]
     Indication: PRODUCT USED FOR UNKNOWN INDICATION
     Route: 065
     Dates: start: 201011, end: 201012
  4. VALIUM [Concomitant]
     Indication: ANXIETY
     Route: 065
  5. VITAMIN A [Concomitant]
     Indication: EATING DISORDER
     Route: 065
  6. VITAMIN D [Concomitant]
     Indication: EATING DISORDER
     Route: 065
  7. VITAMIN B12 [Concomitant]
     Indication: EATING DISORDER
     Route: 065
  8. E VITAMIN [Concomitant]
     Indication: EATING DISORDER
     Route: 065
  9. VITAMIN C [Concomitant]
     Indication: EATING DISORDER
     Route: 065

REACTIONS (8)
  - Loss of consciousness [Unknown]
  - Somnolence [Not Recovered/Not Resolved]
  - Fall [Unknown]
  - Erythema [Unknown]
  - Headache [Unknown]
  - Acne [Unknown]
  - Pruritus generalised [Unknown]
  - Rash [Unknown]
